FAERS Safety Report 25017553 (Version 2)
Quarter: 2025Q1

REPORT INFORMATION
  Report Type: Spontaneous
  Country: GB (occurrence: GB)
  Receive Date: 20250227
  Receipt Date: 20250327
  Transmission Date: 20250408
  Serious: Yes (Life-Threatening, Hospitalization, Disabling, Other)
  Sender: AUROBINDO
  Company Number: GB-MHRA-MED-202502122214211120-DHBLZ

PATIENT
  Age: 33 Year
  Sex: Female

DRUGS (1)
  1. PREDNISOLONE [Suspect]
     Active Substance: PREDNISOLONE
     Indication: Autoimmune hepatitis
     Route: 065
     Dates: start: 2011

REACTIONS (3)
  - Adrenocortical insufficiency acute [Not Recovered/Not Resolved]
  - Steroid withdrawal syndrome [Unknown]
  - Medication error [Unknown]

NARRATIVE: CASE EVENT DATE: 20200101
